FAERS Safety Report 18087199 (Version 1)
Quarter: 2020Q3

REPORT INFORMATION
  Report Type: Spontaneous
  Country: US (occurrence: US)
  Receive Date: 20200729
  Receipt Date: 20200729
  Transmission Date: 20201103
  Serious: No
  Sender: FDA-Public Use
  Company Number: US-BAYER-2020-147238

PATIENT
  Sex: Female

DRUGS (2)
  1. MIRENA [Suspect]
     Active Substance: LEVONORGESTREL
     Dosage: 20 ?G PER DAY CONTINOUSLY
     Route: 015
  2. MIRENA [Suspect]
     Active Substance: LEVONORGESTREL
     Dosage: 20 ?G PER DAY CONTINOUSLY
     Route: 015

REACTIONS (4)
  - Procedural pain [None]
  - Constipation [Not Recovered/Not Resolved]
  - Procedural nausea [Not Recovered/Not Resolved]
  - Device use error [Not Recovered/Not Resolved]
